FAERS Safety Report 21764663 (Version 2)
Quarter: 2023Q1

REPORT INFORMATION
  Report Type: Report from Study
  Country: BR (occurrence: BR)
  Receive Date: 20221222
  Receipt Date: 20230119
  Transmission Date: 20230417
  Serious: Yes (Other)
  Sender: FDA-Public Use
  Company Number: BR-CELLTRION INC.-2022BR021484

PATIENT

DRUGS (1)
  1. INFLIXIMAB [Suspect]
     Active Substance: INFLIXIMAB
     Indication: Product used for unknown indication
     Route: 042

REACTIONS (8)
  - Pruritus [Recovering/Resolving]
  - Nasal oedema [Recovering/Resolving]
  - Hypoaesthesia oral [Recovering/Resolving]
  - Flushing [Recovering/Resolving]
  - Lip oedema [Recovering/Resolving]
  - Hypoaesthesia [Recovering/Resolving]
  - Hypertension [Recovering/Resolving]
  - Heart rate increased [Recovering/Resolving]
